FAERS Safety Report 23706179 (Version 1)
Quarter: 2024Q2

REPORT INFORMATION
  Report Type: Spontaneous
  Country: US (occurrence: US)
  Receive Date: 20240404
  Receipt Date: 20240404
  Transmission Date: 20240716
  Serious: Yes (Other)
  Sender: FDA-Public Use
  Company Number: US-BRISTOL-MYERS SQUIBB COMPANY-2024-050033

PATIENT
  Age: 76 Year
  Sex: Male
  Weight: 69.85 kg

DRUGS (1)
  1. OPDUALAG [Suspect]
     Active Substance: NIVOLUMAB\RELATLIMAB-RMBW
     Indication: Malignant melanoma
     Dosage: DOSE : UNKNOWN;     FREQ : EVERY 4 WEEK
     Route: 042
     Dates: start: 202208

REACTIONS (7)
  - Dermatitis acneiform [Recovering/Resolving]
  - Fatigue [Unknown]
  - Product availability issue [Unknown]
  - Therapy interrupted [Unknown]
  - Basal cell carcinoma [Unknown]
  - COVID-19 [Unknown]
  - Ascariasis [Unknown]

NARRATIVE: CASE EVENT DATE: 20240227
